FAERS Safety Report 5408116-8 (Version None)
Quarter: 2007Q3

REPORT INFORMATION
  Report Type: 
  Country: None (occurrence: None)
  Receive Date: 20070806
  Receipt Date: 20070806
  Transmission Date: 20080115
  Serious: Yes (Hospitalization)
  Sender: FDA-Public Use
  Company Number: None

PATIENT
  Age: 67 Year
  Sex: Male

DRUGS (1)
  1. INDOMETHACIN [Suspect]
     Indication: ANTIINFLAMMATORY THERAPY
     Dosage: 50MG TID PO
     Route: 048
     Dates: start: 20070411, end: 20070417

REACTIONS (1)
  - RENAL FAILURE [None]
